FAERS Safety Report 5495507-2 (Version None)
Quarter: 2007Q4

REPORT INFORMATION
  Report Type: 
  Country: None (occurrence: None)
  Receive Date: 20071023
  Receipt Date: 20071010
  Transmission Date: 20080405
  Serious: Yes (Life-Threatening, Hospitalization, Other)
  Sender: FDA-Public Use
  Company Number: 07102279

PATIENT
  Age: 74 Year
  Sex: Male

DRUGS (1)
  1. CIPROFLOXACIN [Suspect]
     Indication: DIARRHOEA
     Dosage: 750MG,BID,ORAL
     Route: 048

REACTIONS (3)
  - BLOOD CREATININE INCREASED [None]
  - KIDNEY FIBROSIS [None]
  - NEPHROPATHY [None]
